FAERS Safety Report 6901309-X (Version None)
Quarter: 2010Q3

REPORT INFORMATION
  Report Type: 
  Country: None (occurrence: None)
  Receive Date: 20100803
  Receipt Date: 20080123
  Transmission Date: 20110219
  Serious: Yes (Other)
  Sender: FDA-Public Use
  Company Number: US-PFIZER INC-2008007807

PATIENT
  Sex: Male

DRUGS (1)
  1. LYRICA [Suspect]
     Dates: start: 20080117

REACTIONS (2)
  - DIPLOPIA [None]
  - IMPAIRED DRIVING ABILITY [None]
